FAERS Safety Report 13950077 (Version 1)
Quarter: 2017Q3

REPORT INFORMATION
  Report Type: Spontaneous
  Country: JP (occurrence: JP)
  Receive Date: 20170908
  Receipt Date: 20170908
  Transmission Date: 20171128
  Serious: Yes (Other)
  Sender: FDA-Public Use
  Company Number: JP-009507513-1709JPN000237J

PATIENT
  Age: 8 Decade
  Sex: Male

DRUGS (2)
  1. CUBICIN [Suspect]
     Active Substance: DAPTOMYCIN
     Indication: STAPHYLOCOCCAL INFECTION
     Dosage: 350 MG, QD
     Route: 041
     Dates: start: 20170721, end: 20170721
  2. CANCIDAS [Suspect]
     Active Substance: CASPOFUNGIN ACETATE
     Indication: BLOOD BETA-D-GLUCAN INCREASED
     Dosage: 50 MG, QD
     Route: 041
     Dates: start: 20170720, end: 20170720

REACTIONS (2)
  - Urticaria [Recovered/Resolved]
  - Toxic skin eruption [Recovered/Resolved]

NARRATIVE: CASE EVENT DATE: 20170720
